FAERS Safety Report 5645994-1 (Version None)
Quarter: 2008Q1

REPORT INFORMATION
  Report Type: 
  Country: None (occurrence: None)
  Receive Date: 20080131
  Receipt Date: 20071214
  Transmission Date: 20080703
  Serious: Yes (Hospitalization)
  Sender: FDA-Public Use
  Company Number: 163-21880-07120878

PATIENT
  Age: 68 Year
  Sex: Male

DRUGS (13)
  1. REVLIMID [Suspect]
     Indication: MULTIPLE MYELOMA
     Dosage: 25 MG, X 21 DAYS / 28 DAYS, ORAL
     Route: 048
     Dates: start: 20071123
  2. DEXAMETHASONE TAB [Concomitant]
  3. WARFARIN SODIUM [Concomitant]
  4. SENNA S (SENNA) [Concomitant]
  5. FENTANYL [Concomitant]
  6. ATIVAN [Concomitant]
  7. LORATADINE [Concomitant]
  8. MULTIVITAMIN [Concomitant]
  9. PRILOSEC [Concomitant]
  10. TUMS (CALCIUM CARBONATE) [Concomitant]
  11. PROCHLORPERAZINE MALEATE [Concomitant]
  12. VICODIN [Concomitant]
  13. OXYCONTIN [Concomitant]

REACTIONS (4)
  - ABDOMINAL DISTENSION [None]
  - BACK PAIN [None]
  - HICCUPS [None]
  - MUSCLE SPASMS [None]
